FAERS Safety Report 6034792-5 (Version None)
Quarter: 2009Q1

REPORT INFORMATION
  Report Type: 
  Country: None (occurrence: None)
  Receive Date: 20090112
  Receipt Date: 20090107
  Transmission Date: 20090719
  Serious: Yes (Other)
  Sender: FDA-Public Use
  Company Number: JP-JNJFOC-20081205489

PATIENT
  Age: 63 Year
  Sex: Female

DRUGS (7)
  1. FENTANYL CITRATE [Suspect]
     Indication: BACK PAIN
     Route: 062
  2. FENTANYL CITRATE [Suspect]
     Indication: CHEST PAIN
     Route: 062
  3. HALOPERIDOL [Suspect]
     Indication: DRUG USE FOR UNKNOWN INDICATION
     Route: 030
  4. AKINETON [Suspect]
     Indication: DRUG USE FOR UNKNOWN INDICATION
     Route: 030
  5. CLOXAZOLAM [Concomitant]
     Route: 048
  6. SULPIRIDE [Concomitant]
     Route: 048
  7. BROTIZOLAM [Concomitant]
     Route: 048

REACTIONS (3)
  - AKATHISIA [None]
  - DELIRIUM [None]
  - DRY MOUTH [None]
